FAERS Safety Report 4334883-0 (Version None)
Quarter: 2004Q2

REPORT INFORMATION
  Report Type: 
  Country: None (occurrence: None)
  Receive Date: 20040405
  Receipt Date: 20040326
  Transmission Date: 20050107
  Serious: Yes (Hospitalization)
  Sender: FDA-Public Use
  Company Number: 2004206343GB

PATIENT
  Age: 78 Year
  Sex: Female

DRUGS (6)
  1. DETRUSITOL [Suspect]
     Dosage: 4 MG, QD, ORAL
     Route: 048
  2. CITALOPRAM [Suspect]
     Dosage: 20 MG, QD, ORAL
     Route: 048
  3. ALLOPURINOL [Concomitant]
  4. FOLIC ACID [Concomitant]
  5. ASCORBIC ACID [Concomitant]
  6. TRIMETHOPRIM [Concomitant]

REACTIONS (3)
  - CONFUSIONAL STATE [None]
  - HALLUCINATION [None]
  - URINARY TRACT INFECTION [None]
